FAERS Safety Report 6426636-4 (Version None)
Quarter: 2009Q4

REPORT INFORMATION
  Report Type: 
  Country: None (occurrence: None)
  Receive Date: 20091104
  Receipt Date: 20091026
  Transmission Date: 20100525
  Serious: Yes (Hospitalization)
  Sender: FDA-Public Use
  Company Number: GXKR2006GB06205

PATIENT
  Age: 75 Year
  Sex: Female

DRUGS (13)
  1. WARFARIN (NGX) [Suspect]
     Indication: ATRIAL FIBRILLATION
     Route: 048
     Dates: start: 20060811
  2. CRANBERRY JUICE [Interacting]
     Indication: CYSTITIS
     Dosage: 1 WEEK
     Route: 048
     Dates: end: 20060821
  3. ACETYLSALICYLIC ACID [Concomitant]
     Indication: CEREBROVASCULAR ACCIDENT
     Dosage: 300 MG, QD
     Route: 048
     Dates: end: 20060811
  4. AZATHIOPRINE [Concomitant]
     Indication: ARTHRITIS
     Dosage: 50 MG, QD
     Route: 048
  5. BISOPROLOL [Concomitant]
     Indication: HYPERTENSION
     Dosage: 2.5 MG, UNK
     Route: 048
  6. CALCICHEW [Concomitant]
     Indication: MINERAL SUPPLEMENTATION
     Dosage: 2 DF, QD
     Route: 048
  7. METFORMIN [Concomitant]
     Indication: DIABETES MELLITUS
     Dosage: 500 MG, BID
     Route: 048
  8. OMEPRAZOLE [Concomitant]
     Indication: GASTROINTESTINAL ULCER
     Dosage: 20 MG, QD
     Route: 048
  9. OXYBUTYNIN [Concomitant]
     Indication: BLADDER SPASM
     Route: 048
  10. PERINDOPRIL [Concomitant]
     Indication: HYPERTENSION
     Dosage: 8 MG, QD
     Route: 048
  11. PREDNISOLONE [Concomitant]
     Indication: ARTHRITIS
     Dosage: 1 MG, UNK
     Route: 048
  12. SIMVASTATIN [Concomitant]
     Indication: BLOOD CHOLESTEROL INCREASED
     Dosage: 20 MG, QD
     Route: 048
  13. TERAZOSIN HCL [Concomitant]
     Indication: HYPERTENSION
     Dosage: 2 MG, PRN
     Route: 048

REACTIONS (4)
  - FOOD INTERACTION [None]
  - INTERNATIONAL NORMALISED RATIO DECREASED [None]
  - INTERNATIONAL NORMALISED RATIO INCREASED [None]
  - VOMITING [None]
